FAERS Safety Report 9127604 (Version 3)
Quarter: 2013Q4

REPORT INFORMATION
  Report Type: Spontaneous
  Country: GB (occurrence: GB)
  Receive Date: 20130228
  Receipt Date: 20131018
  Transmission Date: 20140711
  Serious: Yes (Death, Other)
  Sender: FDA-Public Use
  Company Number: GB-ASTRAZENECA-2013SE12745

PATIENT
  Age: 71 Year
  Sex: Male

DRUGS (2)
  1. OMEPRAZOLE [Suspect]
     Route: 048
     Dates: start: 2001
  2. CLOPIDOGREL [Interacting]
     Dosage: GENERIC
     Route: 048
     Dates: start: 2001

REACTIONS (8)
  - Drug interaction [Fatal]
  - Cardiac arrest [Fatal]
  - Thrombosis in device [Fatal]
  - Acute myocardial infarction [Fatal]
  - Myocardial ischaemia [Fatal]
  - Hypertension [Fatal]
  - Drug prescribing error [Fatal]
  - Drug ineffective [Fatal]
